FAERS Safety Report 19457089 (Version 1)
Quarter: 2021Q2

REPORT INFORMATION
  Report Type: Other
  Country: IT (occurrence: IT)
  Receive Date: 20210624
  Receipt Date: 20210624
  Transmission Date: 20210717
  Serious: Yes (Life-Threatening, Hospitalization, Other)
  Sender: FDA-Public Use
  Company Number: IT-INNOGENIX, LLC-2113058

PATIENT
  Age: 41 Year
  Sex: Male

DRUGS (1)
  1. LABETALOL HYDROCHLORIDE. [Suspect]
     Active Substance: LABETALOL HYDROCHLORIDE
     Indication: ADRENOCORTICAL INSUFFICIENCY ACUTE
     Route: 042

REACTIONS (1)
  - Cardiac arrest [Recovered/Resolved]
